FAERS Safety Report 5755677-5 (Version None)
Quarter: 2008Q2

REPORT INFORMATION
  Report Type: 
  Country: None (occurrence: None)
  Receive Date: 20080530
  Receipt Date: 20080530
  Transmission Date: 20081010
  Serious: Yes (Hospitalization)
  Sender: FDA-Public Use
  Company Number: None

PATIENT
  Age: 59 Year
  Sex: Female
  Weight: 57 kg

DRUGS (1)
  1. ERLOTINIB [Suspect]
     Indication: LUNG NEOPLASM MALIGNANT
     Dosage: 150 MG ORAL ONCE DAILY
     Route: 048
     Dates: start: 20080521, end: 20080527

REACTIONS (6)
  - ELECTROCARDIOGRAM QT INTERVAL ABNORMAL [None]
  - HYPOVOLAEMIA [None]
  - METABOLIC ACIDOSIS [None]
  - ORTHOSTATIC HYPOTENSION [None]
  - SYNCOPE VASOVAGAL [None]
  - VOMITING [None]
